FAERS Safety Report 22013877 (Version 2)
Quarter: 2023Q1

REPORT INFORMATION
  Report Type: Spontaneous
  Country: JP (occurrence: JP)
  Receive Date: 20230221
  Receipt Date: 20230227
  Transmission Date: 20230418
  Serious: No
  Sender: FDA-Public Use
  Company Number: JP-MSD-2302JPN001866J

PATIENT
  Age: 83 Year
  Sex: Female

DRUGS (11)
  1. LAGEVRIO [Suspect]
     Active Substance: MOLNUPIRAVIR
     Indication: COVID-19 treatment
     Dosage: 800 MILLIGRAM, BID
     Route: 048
     Dates: start: 20230207, end: 20230209
  2. PITAVASTATIN CALCIUM [Concomitant]
     Active Substance: PITAVASTATIN CALCIUM
     Dosage: UNK
     Route: 048
     Dates: start: 20230203
  3. ELDECALCITOL [Concomitant]
     Active Substance: ELDECALCITOL
     Dosage: UNK
     Route: 048
     Dates: start: 20230203
  4. EDOXABAN TOSYLATE [Concomitant]
     Active Substance: EDOXABAN TOSYLATE
     Dosage: UNK
     Route: 048
     Dates: start: 20230203
  5. FAMOTIDINE [Concomitant]
     Active Substance: FAMOTIDINE
     Dosage: UNK
     Route: 048
     Dates: start: 20230203
  6. PANTETHINE [Concomitant]
     Active Substance: PANTETHINE
     Dosage: UNK
     Route: 048
     Dates: start: 20230203
  7. MAGNESIUM OXIDE [Concomitant]
     Active Substance: MAGNESIUM OXIDE
     Dosage: UNK
     Route: 048
     Dates: start: 20230203
  8. LASCUFLOXACIN HYDROCHLORIDE [Concomitant]
     Active Substance: LASCUFLOXACIN HYDROCHLORIDE
     Dosage: UNK
     Route: 048
     Dates: start: 20230207, end: 20230210
  9. DEXTROMETHORPHAN HYDROBROMIDE [Concomitant]
     Active Substance: DEXTROMETHORPHAN HYDROBROMIDE
     Dosage: UNK
     Route: 048
     Dates: start: 20230207, end: 20230210
  10. TULOBUTEROL [Concomitant]
     Active Substance: TULOBUTEROL
     Dosage: UNK
     Dates: start: 20230207, end: 20230210
  11. CALONAL [Concomitant]
     Active Substance: ACETAMINOPHEN
     Dosage: UNK
     Route: 048
     Dates: start: 20230207

REACTIONS (1)
  - Diarrhoea [Recovered/Resolved]

NARRATIVE: CASE EVENT DATE: 20230208
